FAERS Safety Report 21027539 (Version 1)
Quarter: 2022Q2

REPORT INFORMATION
  Report Type: Spontaneous
  Country: MA (occurrence: MA)
  Receive Date: 20220630
  Receipt Date: 20220630
  Transmission Date: 20220720
  Serious: Yes (Death, Hospitalization, Other)
  Sender: FDA-Public Use
  Company Number: MA-NATCOUSA-2022-NATCOUSA-000056

PATIENT
  Age: 75 Year
  Sex: Male

DRUGS (1)
  1. IMATINIB MESYLATE [Suspect]
     Active Substance: IMATINIB MESYLATE
     Indication: Gastrointestinal stromal tumour

REACTIONS (2)
  - Drug resistance [Fatal]
  - Infection [Fatal]
